FAERS Safety Report 8464876-3 (Version None)
Quarter: 2012Q2

REPORT INFORMATION
  Report Type: 
  Country: None (occurrence: None)
  Receive Date: 20120626
  Receipt Date: 20120620
  Transmission Date: 20120825
  Serious: Yes (Death)
  Sender: FDA-Public Use
  Company Number: US-ELI_LILLY_AND_COMPANY-US201205009104

PATIENT
  Sex: Female
  Weight: 64 kg

DRUGS (7)
  1. FOLIC ACID [Concomitant]
  2. LORAZEPAM [Concomitant]
  3. FENTANYL [Concomitant]
     Route: 062
  4. HYDROMORPHONE HCL [Concomitant]
  5. ALIMTA [Suspect]
     Indication: LUNG NEOPLASM MALIGNANT
     Dosage: 860 MG, UNK
     Route: 042
     Dates: start: 20120220, end: 20120220
  6. DEXAMETHASONE [Concomitant]
  7. GLUCOSAMINE [Concomitant]

REACTIONS (1)
  - NEOPLASM PROGRESSION [None]
